FAERS Safety Report 14693581 (Version 1)
Quarter: 2018Q1

REPORT INFORMATION
  Report Type: Spontaneous
  Country: JP (occurrence: JP)
  Receive Date: 20180329
  Receipt Date: 20180329
  Transmission Date: 20180509
  Serious: Yes (Hospitalization)
  Sender: FDA-Public Use
  Company Number: JP-GLAXOSMITHKLINE-JP2018JPN048969

PATIENT

DRUGS (1)
  1. IMIGRAN STATDOSE [Suspect]
     Active Substance: SUMATRIPTAN
     Indication: HEADACHE
     Route: 058

REACTIONS (2)
  - Back pain [Unknown]
  - Headache [Unknown]
